FAERS Safety Report 6125017-0 (Version None)
Quarter: 2009Q1

REPORT INFORMATION
  Report Type: 
  Country: None (occurrence: None)
  Receive Date: 20090319
  Receipt Date: 20090305
  Transmission Date: 20090719
  Serious: Yes (Hospitalization, Other)
  Sender: FDA-Public Use
  Company Number: US-PFIZER INC-2009179703

PATIENT
  Sex: Female

DRUGS (2)
  1. LYRICA [Suspect]
     Indication: FIBROMYALGIA
     Dosage: 50 MG, 1X/DAY
     Dates: end: 20080801
  2. IBUPROFEN [Suspect]
     Indication: BACK INJURY
     Dosage: UNK
     Dates: start: 19910101

REACTIONS (9)
  - COGNITIVE DISORDER [None]
  - FIBROMYALGIA [None]
  - GASTRIC ULCER [None]
  - ILEUS [None]
  - MEMORY IMPAIRMENT [None]
  - MIGRAINE [None]
  - PAIN IN EXTREMITY [None]
  - SPEECH DISORDER [None]
  - VISUAL IMPAIRMENT [None]
